FAERS Safety Report 18228099 (Version 2)
Quarter: 2020Q3

REPORT INFORMATION
  Report Type: Report from Study
  Country: JP (occurrence: JP)
  Receive Date: 20200903
  Receipt Date: 20200923
  Transmission Date: 20201103
  Serious: Yes (Hospitalization)
  Sender: FDA-Public Use
  Company Number: JP-AMGEN-JPNNI2020139349

PATIENT
  Age: 69 Year
  Sex: Female

DRUGS (7)
  1. BLINATUMOMAB [Suspect]
     Active Substance: BLINATUMOMAB
     Indication: B PRECURSOR TYPE ACUTE LEUKAEMIA
     Dosage: 6.5 MICROGRAM, QD
     Route: 041
     Dates: start: 20200114, end: 20200120
  2. BLINATUMOMAB [Suspect]
     Active Substance: BLINATUMOMAB
     Dosage: 19.6 MICROGRAM, QD
     Route: 041
     Dates: start: 20200226, end: 20200324
  3. BLINATUMOMAB [Suspect]
     Active Substance: BLINATUMOMAB
     Dosage: 19.6 MICROGRAM, QD
     Route: 041
     Dates: start: 20200121, end: 20200210
  4. DECADRON [Concomitant]
     Active Substance: DEXAMETHASONE
     Indication: PROPHYLAXIS
     Dosage: UNK
     Dates: start: 20200114, end: 20200114
  5. DECADRON [Concomitant]
     Active Substance: DEXAMETHASONE
     Dosage: UNK
     Dates: start: 20200226, end: 20200226
  6. SPRYCEL [Concomitant]
     Active Substance: DASATINIB
     Dosage: UNK
  7. DECADRON [Concomitant]
     Active Substance: DEXAMETHASONE
     Dosage: UNK
     Dates: start: 20200121, end: 20200121

REACTIONS (2)
  - Febrile neutropenia [Recovering/Resolving]
  - Decreased appetite [Recovering/Resolving]

NARRATIVE: CASE EVENT DATE: 20200117
